FAERS Safety Report 17099835 (Version 1)
Quarter: 2019Q4

REPORT INFORMATION
  Report Type: Spontaneous
  Country: DE (occurrence: DE)
  Receive Date: 20191202
  Receipt Date: 20191202
  Transmission Date: 20200122
  Serious: Yes (Hospitalization)
  Sender: FDA-Public Use
  Company Number: DE-MYLANLABS-2019M1115710

PATIENT
  Age: 88 Year
  Sex: Male

DRUGS (10)
  1. METOPROLOL. [Suspect]
     Active Substance: METOPROLOL
     Indication: PRODUCT USED FOR UNKNOWN INDICATION
     Dosage: 1-0-1-0
  2. ALLOPURINOL. [Concomitant]
     Active Substance: ALLOPURINOL
     Dosage: 0.5-0-0-0
  3. DEKRISTOL [Concomitant]
     Active Substance: CHOLECALCIFEROL
     Dosage: NK IE, 1X/WOCHE; SAMSTAGS
  4. ASPIRIN. [Concomitant]
     Active Substance: ASPIRIN
     Dosage: 0-1-0-0
  5. ARANESP [Concomitant]
     Active Substance: DARBEPOETIN ALFA
     Dosage: 1X/WOCHE; SAMSTAG
  6. BRIMICA [Concomitant]
     Active Substance: ACLIDINIUM BROMIDE\FORMOTEROL FUMARATE
     Dosage: 340/12 ?G, 1-0-1-0
  7. ATORVASTATIN [Concomitant]
     Active Substance: ATORVASTATIN
     Dosage: 0-0-1-0
  8. TORASEMID [Concomitant]
     Active Substance: TORSEMIDE
     Dosage: 1-0-0.5-0
  9. RAMIPRIL. [Concomitant]
     Active Substance: RAMIPRIL
     Dosage: 0.5-0-0-0
  10. TAMSULOSIN [Concomitant]
     Active Substance: TAMSULOSIN
     Dosage: 1-0-0-0

REACTIONS (2)
  - Pain [Unknown]
  - Erythema [Unknown]

NARRATIVE: CASE EVENT DATE: 20171204
